FAERS Safety Report 5132009-7 (Version None)
Quarter: 2006Q4

REPORT INFORMATION
  Report Type: 
  Country: None (occurrence: None)
  Receive Date: 20061017
  Receipt Date: 20061004
  Transmission Date: 20070319
  Serious: Yes (Other)
  Sender: FDA-Public Use
  Company Number: 2006124665

PATIENT
  Sex: Male

DRUGS (3)
  1. BEXTRA [Suspect]
  2. CELEBREX [Suspect]
  3. VIOXX [Concomitant]
     Dates: start: 20040101, end: 20040901

REACTIONS (1)
  - ISCHAEMIC STROKE [None]
